FAERS Safety Report 11952596 (Version 1)
Quarter: 2016Q1

REPORT INFORMATION
  Report Type: Spontaneous
  Country: US (occurrence: US)
  Receive Date: 20160126
  Receipt Date: 20160126
  Transmission Date: 20160526
  Serious: Yes (Hospitalization, Other)
  Sender: FDA-Public Use
  Company Number: US-TURING PHARMACEUTICALS-2015TNG00071

PATIENT
  Age: 72 Year
  Sex: Female
  Weight: 99.77 kg

DRUGS (17)
  1. LEVOTHYROXIN [Concomitant]
     Active Substance: LEVOTHYROXINE
     Dosage: 25 ?G, UNK
     Dates: start: 20151019
  2. KLONOPIN [Concomitant]
     Active Substance: CLONAZEPAM
     Dosage: 0.5 MG, 1X/DAY
  3. ^ENDOR^ [Concomitant]
     Dosage: 30 MG, 1X/DAY
  4. BYSTOLIC [Concomitant]
     Active Substance: NEBIVOLOL HYDROCHLORIDE
     Dosage: 2 MG, 1X/DAY
  5. BYSTOLIC [Concomitant]
     Active Substance: NEBIVOLOL HYDROCHLORIDE
     Dosage: 10 UNK, UNK
     Dates: start: 20151019
  6. ULORIC [Concomitant]
     Active Substance: FEBUXOSTAT
     Dosage: 40 MG, 1X/DAY
  7. DIAZEPAM. [Concomitant]
     Active Substance: DIAZEPAM
     Dosage: 25 MG, 1X/DAY
  8. DARAPRIM [Suspect]
     Active Substance: PYRIMETHAMINE
     Indication: TOXOPLASMOSIS
     Dosage: 25 MG, 1X/DAY
     Route: 048
     Dates: start: 20150922, end: 20151015
  9. PLAVIX [Suspect]
     Active Substance: CLOPIDOGREL BISULFATE
     Dosage: 75 MG, 1X/DAY
     Dates: end: 201510
  10. DETROL LA [Concomitant]
     Active Substance: TOLTERODINE TARTRATE
     Dosage: 4 MG, 1X/DAY
  11. FUROSEMIDE. [Concomitant]
     Active Substance: FUROSEMIDE
     Dosage: 40 MG, 1X/DAY
  12. LEUCOVORIN. [Concomitant]
     Active Substance: LEUCOVORIN
     Dosage: 5 MG, 3X/DAY
  13. CELEBREX [Concomitant]
     Active Substance: CELECOXIB
     Dosage: 200 MG, 1X/DAY
  14. LIPITOR [Concomitant]
     Active Substance: ATORVASTATIN CALCIUM
     Dosage: 10 MG, 1X/DAY
  15. LEVOTHYROXIN [Concomitant]
     Active Substance: LEVOTHYROXINE
     Dosage: 75 ?G, 1X/DAY
     Dates: end: 201510
  16. TRAMADOL. [Concomitant]
     Active Substance: TRAMADOL
     Dosage: 50 MG, AS NEEDED
  17. FLUOXETINE [Concomitant]
     Active Substance: FLUOXETINE HYDROCHLORIDE
     Dosage: 20 MG, 1X/DAY

REACTIONS (13)
  - Dyspnoea exertional [Unknown]
  - Anaemia macrocytic [Unknown]
  - Cardiac stress test abnormal [Unknown]
  - Fall [Unknown]
  - Acute kidney injury [Unknown]
  - Blood cholesterol increased [Unknown]
  - Decreased appetite [Recovering/Resolving]
  - General physical health deterioration [Unknown]
  - Memory impairment [Unknown]
  - Fatigue [Unknown]
  - Thrombocytopenia [Unknown]
  - Asthenia [Unknown]
  - Cardiac failure congestive [Unknown]

NARRATIVE: CASE EVENT DATE: 2015
